FAERS Safety Report 7152972-2 (Version None)
Quarter: 2010Q4

REPORT INFORMATION
  Report Type: 
  Country: None (occurrence: None)
  Receive Date: 20101213
  Receipt Date: 20101130
  Transmission Date: 20110411
  Serious: Yes (Other)
  Sender: FDA-Public Use
  Company Number: RU-GENZYME-CAMP-1001194

PATIENT
  Age: 16 Year
  Sex: Female

DRUGS (17)
  1. CAMPATH [Suspect]
     Indication: BONE MARROW CONDITIONING REGIMEN
     Dosage: UNK, POST INITIAL TRANSPLANT
     Route: 065
  2. CAMPATH [Suspect]
     Indication: PROPHYLAXIS AGAINST GRAFT VERSUS HOST DISEASE
  3. FLUDARA [Suspect]
     Indication: BONE MARROW CONDITIONING REGIMEN
     Dosage: 150 MG/M2, DAYS -6,-5,-4,-3,-2
     Route: 065
  4. FLUDARA [Suspect]
     Indication: PROPHYLAXIS AGAINST GRAFT VERSUS HOST DISEASE
  5. CYCLOPHOSPHAMIDE [Suspect]
     Indication: BONE MARROW CONDITIONING REGIMEN
     Dosage: 100 MG/KG, DAYS -5,-4,-3,-2
     Route: 065
  6. CYCLOPHOSPHAMIDE [Suspect]
     Indication: PROPHYLAXIS AGAINST GRAFT VERSUS HOST DISEASE
  7. THYMOGLOBULIN [Suspect]
     Indication: BONE MARROW CONDITIONING REGIMEN
     Dosage: 10 MG/KG, DAYS -4,-3,-2,-1
     Route: 065
  8. THYMOGLOBULIN [Suspect]
     Indication: PROPHYLAXIS AGAINST GRAFT VERSUS HOST DISEASE
  9. RITUXIMAB [Suspect]
     Indication: BONE MARROW CONDITIONING REGIMEN
     Dosage: 375 MG/M2, DAY -1
     Route: 065
  10. RITUXIMAB [Suspect]
     Indication: PROPHYLAXIS AGAINST GRAFT VERSUS HOST DISEASE
  11. TACROLIMUS [Concomitant]
     Indication: PROPHYLAXIS AGAINST GRAFT VERSUS HOST DISEASE
     Dosage: 200-400 MG/ML, DAY -1
     Route: 042
  12. MYCOPHENOLATE MOFETIL [Concomitant]
     Indication: PROPHYLAXIS AGAINST GRAFT VERSUS HOST DISEASE
     Dosage: 30 MG/KG, STARTING DAY +1
     Route: 065
  13. AMOXICILLIN [Concomitant]
     Indication: ANTIBIOTIC PROPHYLAXIS
     Dosage: 30 MG/KG, QD
     Route: 065
  14. CIPROFLOXACIN [Concomitant]
     Indication: ANTIBIOTIC PROPHYLAXIS
     Dosage: 15 MG/KG, QD
     Route: 065
  15. TRIMETHOPRIM + SULFAMETHOXAZOLE [Concomitant]
     Indication: PROPHYLAXIS
     Dosage: DAYS -10,-9,-8 AND -3,-2,-1
     Route: 065
  16. TRIMETHOPRIM + SULFAMETHOXAZOLE [Concomitant]
     Dosage: UNK, STARTING DAY +21
     Route: 065
  17. ACYCLOVIR [Concomitant]
     Indication: ANTIVIRAL PROPHYLAXIS
     Dosage: UNK, STARTING DAY +1
     Route: 065

REACTIONS (2)
  - GRAFT VERSUS HOST DISEASE [None]
  - TRANSPLANT FAILURE [None]
